FAERS Safety Report 6882781-0 (Version None)
Quarter: 2010Q3

REPORT INFORMATION
  Report Type: 
  Country: None (occurrence: None)
  Receive Date: 20100727
  Receipt Date: 20100721
  Transmission Date: 20110219
  Serious: No
  Sender: FDA-Public Use
  Company Number: NXG-10-003

PATIENT
  Sex: Female

DRUGS (1)
  1. POLYETHYLENE GLYCOL 3350 [Suspect]
     Indication: CONSTIPATION
     Dosage: 17GM IN 8OZ WATER/DAY

REACTIONS (4)
  - LIP SWELLING [None]
  - NAUSEA [None]
  - PRODUCT SOLUBILITY ABNORMAL [None]
  - SWOLLEN TONGUE [None]
